FAERS Safety Report 6967951-5 (Version None)
Quarter: 2010Q3

REPORT INFORMATION
  Report Type: 
  Country: None (occurrence: None)
  Receive Date: 20100907
  Receipt Date: 20100827
  Transmission Date: 20110219
  Serious: Yes (Other)
  Sender: FDA-Public Use
  Company Number: IE-BAXTER-2010BH017755

PATIENT
  Age: 75 Year
  Sex: Male

DRUGS (1)
  1. GAMMAGARD LIQUID [Suspect]
     Indication: IMMUNOGLOBULINS DECREASED
     Route: 042
     Dates: start: 20100618, end: 20100618

REACTIONS (2)
  - CHILLS [None]
  - NERVOUSNESS [None]
